FAERS Safety Report 10272979 (Version 1)
Quarter: 2014Q3

REPORT INFORMATION
  Report Type: Spontaneous
  Country: US (occurrence: US)
  Receive Date: 20140702
  Receipt Date: 20140702
  Transmission Date: 20150326
  Serious: Yes (Other)
  Sender: FDA-Public Use
  Company Number: US-AMGEN INC.-USASP2014048551

PATIENT
  Age: 38 Year
  Sex: Female

DRUGS (1)
  1. ENBREL [Suspect]
     Active Substance: ETANERCEPT
     Indication: PSORIASIS
     Dosage: 50 MG, QWK
     Route: 065
     Dates: start: 20060814

REACTIONS (10)
  - Stomatitis [Unknown]
  - Malaise [Not Recovered/Not Resolved]
  - Oral bacterial infection [Unknown]
  - Staphylococcal skin infection [Unknown]
  - Fungal skin infection [Unknown]
  - Tremor [Not Recovered/Not Resolved]
  - Wound [Not Recovered/Not Resolved]
  - Skin ulcer [Unknown]
  - Feeling cold [Not Recovered/Not Resolved]
  - Oral fungal infection [Unknown]

NARRATIVE: CASE EVENT DATE: 2009
